FAERS Safety Report 10699841 (Version 1)
Quarter: 2014Q4

REPORT INFORMATION
  Report Type: Spontaneous
  Country: AU (occurrence: None)
  Receive Date: 20141230
  Receipt Date: 20141230
  Transmission Date: 20150529
  Serious: Yes (Hospitalization)
  Sender: FDA-Public Use
  Company Number: GAM-414-14-AU

PATIENT
  Age: 68 Year
  Sex: Female

DRUGS (3)
  1. STEROID [Concomitant]
     Active Substance: UNSPECIFIED INGREDIENT
  2. OCTAGAM IMMUNE GLOBULIN (HUMAN) [Suspect]
     Active Substance: HUMAN IMMUNOGLOBULIN G
     Indication: MYASTHENIA GRAVIS
     Dosage: 1X 1 D?(NOT OTHERWISE SPECIFIED)
     Route: 042
  3. CYCLOSPRINE [Concomitant]

REACTIONS (11)
  - Dysphonia [None]
  - Drug ineffective [None]
  - Eye swelling [None]
  - Asthenia [None]
  - Dyspnoea [None]
  - Product substitution issue [None]
  - General physical health deterioration [None]
  - Disease recurrence [None]
  - Dysphagia [None]
  - Myasthenia gravis [None]
  - Emotional distress [None]
